FAERS Safety Report 11688369 (Version 1)
Quarter: 2015Q4

REPORT INFORMATION
  Report Type: Spontaneous
  Country: US (occurrence: US)
  Receive Date: 20151031
  Receipt Date: 20151031
  Transmission Date: 20160304
  Serious: Yes (Other)
  Sender: FDA-Public Use
  Company Number: US-CELGENEUS-USA-2015105250

PATIENT
  Sex: Male
  Weight: 83.08 kg

DRUGS (2)
  1. REVLIMID [Suspect]
     Active Substance: LENALIDOMIDE
     Indication: PLASMA CELL MYELOMA
     Route: 048
     Dates: start: 200806
  2. REVLIMID [Suspect]
     Active Substance: LENALIDOMIDE
     Route: 048
     Dates: start: 20150930

REACTIONS (2)
  - Musculoskeletal pain [Unknown]
  - Depression [Unknown]

NARRATIVE: CASE EVENT DATE: 2008
